FAERS Safety Report 13061425 (Version 1)
Quarter: 2016Q4

REPORT INFORMATION
  Report Type: Spontaneous
  Country: US (occurrence: US)
  Receive Date: 20161226
  Receipt Date: 20161226
  Transmission Date: 20170207
  Serious: No
  Sender: FDA-Public Use
  Company Number: US-CIPLA LTD.-2016US02978

PATIENT

DRUGS (6)
  1. LAMOTRIGINE. [Suspect]
     Active Substance: LAMOTRIGINE
     Dosage: 75 MG, UNK
     Route: 048
  2. LAMOTRIGINE. [Suspect]
     Active Substance: LAMOTRIGINE
     Dosage: 400 MG, QD
     Dates: start: 20160303, end: 20160306
  3. LAMOTRIGINE. [Suspect]
     Active Substance: LAMOTRIGINE
     Dosage: 200 MG, QD TWO TABLETS
     Route: 048
  4. LAMOTRIGINE. [Suspect]
     Active Substance: LAMOTRIGINE
     Dosage: 100 MG, UNK
     Route: 048
  5. LAMOTRIGINE. [Suspect]
     Active Substance: LAMOTRIGINE
     Indication: BIPOLAR DISORDER
     Dosage: 50 MG, QD FOR A WEEK
     Route: 048
     Dates: start: 201601
  6. TOPAMAX [Concomitant]
     Active Substance: TOPIRAMATE
     Indication: BIPOLAR DISORDER
     Dosage: 3 TABLETS, BID SINCE SEVERAL YEARS
     Route: 065

REACTIONS (2)
  - Rash [Recovered/Resolved]
  - Pruritus [Recovered/Resolved]

NARRATIVE: CASE EVENT DATE: 20160306
